FAERS Safety Report 13243339 (Version 1)
Quarter: 2017Q1

REPORT INFORMATION
  Report Type: Spontaneous
  Country: DE (occurrence: DE)
  Receive Date: 20170217
  Receipt Date: 20170217
  Transmission Date: 20170428
  Serious: Yes (Other)
  Sender: FDA-Public Use
  Company Number: DE-PFIZER INC-2017064873

PATIENT

DRUGS (2)
  1. AMITRIPTYLIN [Suspect]
     Active Substance: AMITRIPTYLINE
     Route: 064
  2. DEPO-CLINOVIR [Suspect]
     Active Substance: MEDROXYPROGESTERONE ACETATE
     Indication: CONTRACEPTION
     Route: 064

REACTIONS (2)
  - Maternal exposure during pregnancy [Unknown]
  - Multiple congenital abnormalities [Unknown]
